FAERS Safety Report 21933352 (Version 1)
Quarter: 2023Q1

REPORT INFORMATION
  Report Type: Spontaneous
  Country: US (occurrence: US)
  Receive Date: 20230131
  Receipt Date: 20230131
  Transmission Date: 20230418
  Serious: No
  Sender: FDA-Public Use
  Company Number: US-BAUSCHBL-2023BNL000703

PATIENT
  Age: 75 Year
  Sex: Female
  Weight: 68.100 kg

DRUGS (2)
  1. SOOTHE XP [Suspect]
     Active Substance: LIGHT MINERAL OIL\MINERAL OIL
     Indication: Dry eye
     Dosage: AS NEEDED
     Route: 047
     Dates: start: 20230124, end: 20230127
  2. LATANOPROST [Suspect]
     Active Substance: LATANOPROST
     Indication: Product used for unknown indication
     Route: 065

REACTIONS (1)
  - Instillation site irritation [Unknown]
